FAERS Safety Report 13413579 (Version 2)
Quarter: 2017Q4

REPORT INFORMATION
  Report Type: Spontaneous
  Country: US (occurrence: US)
  Receive Date: 20170406
  Receipt Date: 20171123
  Transmission Date: 20180320
  Serious: No
  Sender: FDA-Public Use
  Company Number: US-JNJFOC-20170317927

PATIENT
  Sex: Male

DRUGS (10)
  1. RISPERDAL [Suspect]
     Active Substance: RISPERIDONE
     Indication: BIPOLAR DISORDER
     Route: 048
     Dates: start: 20010117, end: 20010709
  2. RISPERIDONE. [Suspect]
     Active Substance: RISPERIDONE
     Indication: BIPOLAR DISORDER
     Route: 048
     Dates: start: 20120107, end: 20120301
  3. RISPERDAL [Suspect]
     Active Substance: RISPERIDONE
     Indication: BIPOLAR DISORDER
     Dosage: IN VARYING DOSE OF 0.5 AND 01 MG
     Route: 048
     Dates: start: 20050103, end: 20050622
  4. RISPERDAL [Suspect]
     Active Substance: RISPERIDONE
     Indication: BIPOLAR DISORDER
     Route: 048
     Dates: start: 20040620
  5. RISPERDAL [Suspect]
     Active Substance: RISPERIDONE
     Indication: BIPOLAR DISORDER
     Route: 048
     Dates: start: 20120405
  6. RISPERDAL [Suspect]
     Active Substance: RISPERIDONE
     Indication: BIPOLAR DISORDER
     Dosage: IN VARYING DOSE OF 02 AND 03 MG AT BEDTIME
     Route: 048
     Dates: start: 20110325, end: 20120106
  7. RISPERDAL [Suspect]
     Active Substance: RISPERIDONE
     Indication: BIPOLAR DISORDER
     Dosage: IN VARYING DOSE OF 0.25, 0.5, 01 AND 02 MG
     Route: 048
     Dates: start: 20060817, end: 20071214
  8. RISPERDAL [Suspect]
     Active Substance: RISPERIDONE
     Indication: BIPOLAR DISORDER
     Route: 048
     Dates: start: 20000706
  9. RISPERDAL [Suspect]
     Active Substance: RISPERIDONE
     Indication: BIPOLAR DISORDER
     Route: 048
     Dates: start: 20100416
  10. RISPERIDONE. [Suspect]
     Active Substance: RISPERIDONE
     Indication: BIPOLAR DISORDER
     Dosage: IN VARYING DOSE OF 02 AND 03 MG
     Route: 048
     Dates: start: 20100519, end: 20110130

REACTIONS (3)
  - Emotional disorder [Unknown]
  - Gynaecomastia [Unknown]
  - Sedation complication [Unknown]

NARRATIVE: CASE EVENT DATE: 2011
